FAERS Safety Report 20700417 (Version 1)
Quarter: 2022Q2

REPORT INFORMATION
  Report Type: Spontaneous
  Country: US (occurrence: US)
  Receive Date: 20220412
  Receipt Date: 20220412
  Transmission Date: 20220721
  Serious: Yes (Other)
  Sender: FDA-Public Use
  Company Number: US-NOVARTISPH-NVSC2022US081668

PATIENT
  Sex: Female

DRUGS (5)
  1. PROMETHAZINE [Suspect]
     Active Substance: PROMETHAZINE HYDROCHLORIDE
     Indication: Foetal exposure during pregnancy
     Dosage: MATERNAL DOSE AT EXPOSURE: UNK
     Route: 064
  2. HYDROXYZINE [Suspect]
     Active Substance: HYDROXYZINE HYDROCHLORIDE
     Indication: Foetal exposure during pregnancy
     Dosage: MATERNAL DOSE AT EXPOSURE: UNK
     Route: 064
  3. CYCLOBENZAPRINE [Suspect]
     Active Substance: CYCLOBENZAPRINE
     Indication: Foetal exposure during pregnancy
     Dosage: MATERNAL DOSE AT EXPOSURE: UNK
     Route: 064
  4. FAMOTIDINE [Suspect]
     Active Substance: FAMOTIDINE
     Indication: Foetal exposure during pregnancy
     Dosage: MATERNAL DOSE AT EXPOSURE: UNK
     Route: 064
  5. LORATADINE [Suspect]
     Active Substance: LORATADINE
     Indication: Foetal exposure during pregnancy
     Dosage: MATERNAL DOSE AT EXPOSURE: UNK
     Route: 064

REACTIONS (2)
  - Infantile haemangioma [Unknown]
  - Foetal exposure during pregnancy [Unknown]
